FAERS Safety Report 8250079-4 (Version None)
Quarter: 2012Q2

REPORT INFORMATION
  Report Type: 
  Country: None (occurrence: None)
  Receive Date: 20120402
  Receipt Date: 20120329
  Transmission Date: 20120825
  Serious: Yes (Death)
  Sender: FDA-Public Use
  Company Number: CN-B.I. PHARMACEUTICALS,INC./RIDGEFIELD-2012-BP-05923BP

PATIENT
  Sex: Male
  Weight: 50 kg

DRUGS (8)
  1. DIGOXIN [Concomitant]
     Indication: CORONARY ARTERY DISEASE
     Dosage: 0.25 MG
     Route: 048
     Dates: start: 20090314, end: 20120321
  2. MUCOSOLVAN [Concomitant]
     Indication: CHRONIC OBSTRUCTIVE PULMONARY DISEASE
     Dosage: 90 MG
     Route: 048
     Dates: start: 20120129, end: 20120204
  3. LANGNING TABLETS [Concomitant]
     Indication: CHRONIC OBSTRUCTIVE PULMONARY DISEASE
     Dosage: 0.4 G
     Route: 048
     Dates: start: 20110304, end: 20120321
  4. KEZHI CAPSULES (COMPOUND METHOXYPHENAMINE CAPSULES) [Concomitant]
     Indication: CHRONIC OBSTRUCTIVE PULMONARY DISEASE
     Dosage: 25 MG
     Route: 048
     Dates: start: 20110304, end: 20120321
  5. MEPTIN [Concomitant]
     Indication: CHRONIC OBSTRUCTIVE PULMONARY DISEASE
     Dosage: 50 MCG
     Route: 048
     Dates: start: 20110304, end: 20120321
  6. XINKANG TABLETS [Concomitant]
     Indication: CORONARY ARTERY DISEASE
     Dosage: 60 MG
     Route: 048
     Dates: start: 20090314, end: 20120321
  7. KEZHI CAPSULES (COMPOUND METHOXYPHENAMINE CAPSULES) [Concomitant]
     Dosage: 50 MG
     Route: 048
     Dates: start: 20110304, end: 20120321
  8. TIOTROPIUM BROMIDE [Suspect]
     Indication: CHRONIC OBSTRUCTIVE PULMONARY DISEASE
     Dosage: 2.5 MCG
     Route: 055
     Dates: start: 20120304, end: 20120321

REACTIONS (1)
  - SUDDEN DEATH [None]
